FAERS Safety Report 7417017-5 (Version None)
Quarter: 2011Q2

REPORT INFORMATION
  Report Type: 
  Country: None (occurrence: None)
  Receive Date: 20110412
  Receipt Date: 20110412
  Transmission Date: 20111010
  Serious: Yes (Other)
  Sender: FDA-Public Use
  Company Number: None

PATIENT
  Age: 73 Year
  Sex: Female
  Weight: 61.6892 kg

DRUGS (2)
  1. PREDNISONE [Suspect]
     Indication: TEMPORAL ARTERITIS
     Dosage: 4MG 4MG 6 A DAY 5 A DAY 4 A DAY
     Dates: start: 20110114
  2. PREDNISONE [Suspect]
     Dosage: 20 MG  3 TIME A DAY

REACTIONS (12)
  - SWELLING FACE [None]
  - FATIGUE [None]
  - HEART RATE DECREASED [None]
  - LOCAL SWELLING [None]
  - HEART RATE INCREASED [None]
  - POLLAKIURIA [None]
  - INCREASED APPETITE [None]
  - MUSCULAR WEAKNESS [None]
  - PAIN IN EXTREMITY [None]
  - CONSTIPATION [None]
  - INSOMNIA [None]
  - TREMOR [None]
